FAERS Safety Report 7077592-X (Version None)
Quarter: 2010Q4

REPORT INFORMATION
  Report Type: 
  Country: None (occurrence: None)
  Receive Date: 20101101
  Receipt Date: 20101026
  Transmission Date: 20110411
  Serious: Yes (Other)
  Sender: FDA-Public Use
  Company Number: US-GENZYME-FABR-1001634

PATIENT

DRUGS (2)
  1. FABRAZYME [Suspect]
     Indication: FABRY'S DISEASE
     Dosage: UNK
     Route: 042
     Dates: start: 20050301, end: 20100701
  2. REPLAGAL [Suspect]
     Indication: FABRY'S DISEASE
     Dosage: UNK
     Dates: start: 20100101

REACTIONS (2)
  - ANGIOPATHY [None]
  - RENAL FAILURE CHRONIC [None]
